APPROVED DRUG PRODUCT: CORTEF
Active Ingredient: HYDROCORTISONE
Strength: 50MG/ML
Dosage Form/Route: INJECTABLE;INJECTION
Application: N009864 | Product #001
Applicant: PHARMACIA AND UPJOHN CO
Approved: Approved Prior to Jan 1, 1982 | RLD: No | RS: No | Type: DISCN